FAERS Safety Report 17093191 (Version 2)
Quarter: 2020Q1

REPORT INFORMATION
  Report Type: Spontaneous
  Country: FR (occurrence: FR)
  Receive Date: 20191129
  Receipt Date: 20200203
  Transmission Date: 20200409
  Serious: Yes (Hospitalization)
  Sender: FDA-Public Use
  Company Number: FR-TEVA-2019-FR-1143138

PATIENT
  Age: 64 Year
  Sex: Female
  Weight: 95 kg

DRUGS (3)
  1. CARBONATE DE CALCIUM [Suspect]
     Active Substance: CALCIUM CARBONATE
     Indication: PRODUCT DOSE OMISSION
     Route: 048
     Dates: end: 20190613
  2. ZOMETA [Suspect]
     Active Substance: ZOLEDRONIC ACID
     Indication: METASTASES TO BONE
     Route: 042
     Dates: start: 20190715, end: 20190805
  3. CHOLECALCIFEROL [Suspect]
     Active Substance: CHOLECALCIFEROL
     Indication: PRODUCT DOSE OMISSION
     Route: 048
     Dates: end: 20190613

REACTIONS (4)
  - Product dose omission [Recovered/Resolved]
  - Product communication issue [Recovered/Resolved]
  - Hypocalcaemia [Recovered/Resolved]
  - Electrocardiogram QT prolonged [Recovered/Resolved]

NARRATIVE: CASE EVENT DATE: 20190613
